FAERS Safety Report 25787631 (Version 1)
Quarter: 2025Q3

REPORT INFORMATION
  Report Type: Spontaneous
  Country: US (occurrence: US)
  Receive Date: 20250910
  Receipt Date: 20250910
  Transmission Date: 20251021
  Serious: Yes (Other)
  Sender: NOVO NORDISK
  Company Number: US-NOVOPROD-866270

PATIENT
  Sex: Female

DRUGS (2)
  1. SAXENDA [Suspect]
     Active Substance: LIRAGLUTIDE
     Route: 058
  2. SAXENDA [Suspect]
     Active Substance: LIRAGLUTIDE
     Indication: Weight decreased
     Route: 058
     Dates: start: 2019

REACTIONS (5)
  - Rotator cuff syndrome [Unknown]
  - Hip surgery [Unknown]
  - Hip surgery [Unknown]
  - Spinal operation [Unknown]
  - Therapeutic product effect decreased [Unknown]
